FAERS Safety Report 12551716 (Version 1)
Quarter: 2016Q3

REPORT INFORMATION
  Report Type: Spontaneous
  Country: US (occurrence: US)
  Receive Date: 20160713
  Receipt Date: 20160713
  Transmission Date: 20161109
  Serious: Yes (Death)
  Sender: FDA-Public Use
  Company Number: PHEH2016US017055

PATIENT
  Age: 56 Year
  Sex: Female

DRUGS (2)
  1. PROMACTA [Suspect]
     Active Substance: ELTROMBOPAG OLAMINE
     Indication: THROMBOCYTOPENIA
     Dosage: 75 MG, QD
     Route: 048
     Dates: start: 20160211
  2. PROMACTA [Suspect]
     Active Substance: ELTROMBOPAG OLAMINE
     Indication: BREAST CANCER

REACTIONS (1)
  - Death [Fatal]

NARRATIVE: CASE EVENT DATE: 20160615
